FAERS Safety Report 9242002 (Version 1)
Quarter: 2013Q2

REPORT INFORMATION
  Report Type: Spontaneous
  Country: CH (occurrence: CH)
  Receive Date: 20130419
  Receipt Date: 20130419
  Transmission Date: 20140414
  Serious: Yes (Hospitalization)
  Sender: FDA-Public Use
  Company Number: CH-ROCHE-1213167

PATIENT
  Age: 42 Year
  Sex: Male
  Weight: 75 kg

DRUGS (5)
  1. PEGASYS [Suspect]
     Indication: CHRONIC HEPATITIS C
     Route: 058
     Dates: start: 201202
  2. COPEGUS [Suspect]
     Indication: CHRONIC HEPATITIS C
     Route: 048
     Dates: start: 201202
  3. FRAXIFORTE [Concomitant]
     Route: 065
     Dates: start: 201203
  4. MARCOUMAR [Concomitant]
  5. CLEXANE MULTI [Concomitant]

REACTIONS (2)
  - Thrombosis [Recovering/Resolving]
  - Thrombophlebitis [Recovering/Resolving]
